FAERS Safety Report 6695879-7 (Version None)
Quarter: 2010Q2

REPORT INFORMATION
  Report Type: 
  Country: None (occurrence: None)
  Receive Date: 20100426
  Receipt Date: 20091124
  Transmission Date: 20101027
  Serious: No
  Sender: FDA-Public Use
  Company Number: A0832534A

PATIENT
  Age: 73 Year
  Sex: Male

DRUGS (2)
  1. ZOFRAN [Suspect]
     Indication: NAUSEA
     Route: 065
  2. GLEEVEC [Concomitant]

REACTIONS (1)
  - NAUSEA [None]
